FAERS Safety Report 24339481 (Version 1)
Quarter: 2024Q3

REPORT INFORMATION
  Report Type: Spontaneous
  Country: US (occurrence: US)
  Receive Date: 20240919
  Receipt Date: 20240919
  Transmission Date: 20241017
  Serious: Yes (Hospitalization)
  Sender: EISAI
  Company Number: US-Eisai-EC-2024-174084

PATIENT
  Age: 61 Year
  Sex: Male

DRUGS (1)
  1. LEQEMBI [Suspect]
     Active Substance: LECANEMAB-IRMB
     Indication: Cognitive disorder
     Dosage: DOSE UNKNOWN
     Route: 042
     Dates: start: 20240722

REACTIONS (4)
  - COVID-19 [Unknown]
  - Headache [Unknown]
  - Feeling cold [Unknown]
  - Feeling hot [Unknown]

NARRATIVE: CASE EVENT DATE: 20240701
